FAERS Safety Report 20911293 (Version 4)
Quarter: 2023Q1

REPORT INFORMATION
  Report Type: Spontaneous
  Country: JP (occurrence: JP)
  Receive Date: 20220603
  Receipt Date: 20230310
  Transmission Date: 20230418
  Serious: Yes (Death)
  Sender: FDA-Public Use
  Company Number: JP-DSJP-DSJ-2022-119156

PATIENT
  Age: 5 Decade
  Sex: Male
  Weight: 58 kg

DRUGS (5)
  1. ENHERTU [Suspect]
     Active Substance: FAM-TRASTUZUMAB DERUXTECAN-NXKI
     Indication: HER2 positive gastric cancer
     Dosage: 6.4 MG/KG, ONCE EVERY 3 WK
     Route: 041
     Dates: start: 20211029, end: 20211029
  2. ENHERTU [Suspect]
     Active Substance: FAM-TRASTUZUMAB DERUXTECAN-NXKI
     Dosage: 6.4 MG/KG, ONCE EVERY 3 WK
     Route: 041
     Dates: start: 20211117, end: 20211117
  3. ENHERTU [Suspect]
     Active Substance: FAM-TRASTUZUMAB DERUXTECAN-NXKI
     Dosage: 6.4 MG/KG, ONCE EVERY 3 WK
     Route: 041
     Dates: start: 20211208, end: 20211208
  4. ENHERTU [Suspect]
     Active Substance: FAM-TRASTUZUMAB DERUXTECAN-NXKI
     Dosage: 5.4 MG/KG, ONCE EVERY 3 WK
     Route: 041
     Dates: start: 20220105, end: 20220105
  5. NIVOLUMAB [Concomitant]
     Active Substance: NIVOLUMAB
     Dosage: UNK
     Route: 065

REACTIONS (3)
  - Disease progression [Fatal]
  - Vomiting [Unknown]
  - Abdominal distension [Unknown]

NARRATIVE: CASE EVENT DATE: 20210101
